FAERS Safety Report 6424624-5 (Version None)
Quarter: 2009Q4

REPORT INFORMATION
  Report Type: 
  Country: None (occurrence: None)
  Receive Date: 20091029
  Receipt Date: 20091014
  Transmission Date: 20100525
  Serious: Yes (Hospitalization)
  Sender: FDA-Public Use
  Company Number: 1000009631

PATIENT
  Age: 85 Year
  Sex: Female

DRUGS (10)
  1. ESCITALOPRAM [Suspect]
     Indication: DEPRESSION
     Dosage: ORAL
     Route: 048
     Dates: start: 20090906, end: 20090909
  2. SPIRONOLACTONE [Concomitant]
  3. ATHYMIL [Concomitant]
  4. DEBRIDAT [Concomitant]
  5. NOCTAMIDE [Concomitant]
  6. VENLAFAXINE [Concomitant]
  7. NULYTELY [Concomitant]
  8. ZANIDIP [Concomitant]
  9. KARDEGIC (POWDER) [Concomitant]
  10. CAPTOPRIL [Concomitant]

REACTIONS (9)
  - BLOOD ALKALINE PHOSPHATASE INCREASED [None]
  - BLOOD POTASSIUM INCREASED [None]
  - CONFUSIONAL STATE [None]
  - DISORIENTATION [None]
  - GAMMA-GLUTAMYLTRANSFERASE INCREASED [None]
  - GENERAL PHYSICAL HEALTH DETERIORATION [None]
  - HYPONATRAEMIA [None]
  - LOSS OF CONSCIOUSNESS [None]
  - PSYCHOMOTOR RETARDATION [None]
